FAERS Safety Report 21263117 (Version 1)
Quarter: 2022Q3

REPORT INFORMATION
  Report Type: Spontaneous
  Country: JP (occurrence: JP)
  Receive Date: 20220828
  Receipt Date: 20220828
  Transmission Date: 20221027
  Serious: Yes (Hospitalization)
  Sender: FDA-Public Use
  Company Number: JP-NOVARTISPH-NVSJ2022JP096117

PATIENT
  Age: 72 Year
  Sex: Female

DRUGS (1)
  1. VALACYCLOVIR HYDROCHLORIDE [Suspect]
     Active Substance: VALACYCLOVIR HYDROCHLORIDE
     Indication: Herpes zoster
     Dosage: UNK
     Route: 048

REACTIONS (8)
  - Toxic encephalopathy [Recovering/Resolving]
  - Hallucination [Recovered/Resolved]
  - Altered state of consciousness [Recovering/Resolving]
  - Gait disturbance [Recovered/Resolved]
  - Speech disorder [Unknown]
  - Acute kidney injury [Recovering/Resolving]
  - Blood creatinine increased [Recovering/Resolving]
  - Meningoencephalitis herpetic [Unknown]
